FAERS Safety Report 5912485-X (Version None)
Quarter: 2008Q4

REPORT INFORMATION
  Report Type: 
  Country: None (occurrence: None)
  Receive Date: 20081007
  Receipt Date: 20081007
  Transmission Date: 20090506
  Serious: Yes (Disabling, Other)
  Sender: FDA-Public Use
  Company Number: None

PATIENT
  Age: 41 Year
  Sex: Female
  Weight: 98.8842 kg

DRUGS (2)
  1. LAMOTRIGINE [Suspect]
     Indication: BIPOLAR DISORDER
     Dosage: 200 MG  1/2 IN AM  PO; 200 MG 1 IN PM PO
     Route: 048
     Dates: start: 20071205, end: 20080707
  2. LAMOTRIGINE [Suspect]
     Indication: BIPOLAR DISORDER
     Dosage: 200 MG  1/2 IN AM  PO; 200 MG 1 IN PM PO
     Route: 048
     Dates: start: 20071205, end: 20080707

REACTIONS (1)
  - STEVENS-JOHNSON SYNDROME [None]
